FAERS Safety Report 18257091 (Version 1)
Quarter: 2020Q3

REPORT INFORMATION
  Report Type: Spontaneous
  Country: JP (occurrence: JP)
  Receive Date: 20200911
  Receipt Date: 20200911
  Transmission Date: 20201103
  Serious: Yes (Other)
  Sender: FDA-Public Use
  Company Number: JP-SUN PHARMACEUTICAL INDUSTRIES LTD-2020R1-259982

PATIENT
  Age: 59 Year
  Sex: Male

DRUGS (2)
  1. OXALIPLATIN. [Suspect]
     Active Substance: OXALIPLATIN
     Indication: GASTRIC CANCER STAGE IV
     Dosage: THREE COURSE
     Route: 065
  2. TS?1 [Suspect]
     Active Substance: GIMERACIL\OTERACIL\TEGAFUR
     Indication: GASTRIC CANCER STAGE IV
     Dosage: THREE COURSE
     Route: 065

REACTIONS (2)
  - Abdominal wall oedema [Unknown]
  - Platelet disorder [Unknown]
